FAERS Safety Report 8386162-2 (Version None)
Quarter: 2012Q2

REPORT INFORMATION
  Report Type: 
  Country: None (occurrence: None)
  Receive Date: 20120525
  Receipt Date: 20120511
  Transmission Date: 20120825
  Serious: Yes (Death, Other)
  Sender: FDA-Public Use
  Company Number: US-RANBAXY-2011US-50084

PATIENT

DRUGS (6)
  1. ZIDOVUDINE [Suspect]
     Indication: ANTIRETROVIRAL THERAPY
     Dosage: 2.0 MG/DAY
     Route: 065
     Dates: start: 20110915, end: 20110915
  2. PREZISTA [Suspect]
     Indication: ANTIRETROVIRAL THERAPY
     Dosage: 800MG/DAY
     Route: 048
     Dates: start: 20110428, end: 20111220
  3. COMBIVIR [Suspect]
     Indication: ANTIRETROVIRAL THERAPY
     Dosage: UNK
     Route: 048
     Dates: start: 20110421, end: 20110915
  4. NORVIR [Suspect]
     Indication: ANTIRETROVIRAL THERAPY
     Dosage: 200MG/DAY
     Route: 048
     Dates: start: 20110428, end: 20110510
  5. NORVIR [Suspect]
     Dosage: 100MG/DAY
     Route: 048
     Dates: start: 20110511, end: 20111220
  6. KALETRA [Suspect]
     Indication: ANTIRETROVIRAL THERAPY
     Dosage: UNK
     Route: 048
     Dates: start: 20110421, end: 20110428

REACTIONS (3)
  - CONGENITAL ANOMALY IN OFFSPRING [None]
  - PREMATURE LABOUR [None]
  - MATERNAL EXPOSURE DURING PREGNANCY [None]
